FAERS Safety Report 4315233-2 (Version None)
Quarter: 2004Q1

REPORT INFORMATION
  Report Type: 
  Country: None (occurrence: None)
  Receive Date: 20040311
  Receipt Date: 20040123
  Transmission Date: 20041129
  Serious: Yes (Other)
  Sender: FDA-Public Use
  Company Number: PHEH2004US01175

PATIENT
  Age: 61 Year
  Sex: Female

DRUGS (1)
  1. LAMISIL [Suspect]
     Indication: NAIL TINEA
     Dosage: 250 MG, QD
     Route: 048
     Dates: end: 20040110

REACTIONS (5)
  - ANTINUCLEAR ANTIBODY POSITIVE [None]
  - CUTANEOUS LUPUS ERYTHEMATOSUS [None]
  - LICHEN PLANUS [None]
  - PRURITUS [None]
  - RASH GENERALISED [None]
